FAERS Safety Report 23155015 (Version 1)
Quarter: 2023Q4

REPORT INFORMATION
  Report Type: Spontaneous
  Country: US (occurrence: US)
  Receive Date: 20231107
  Receipt Date: 20231107
  Transmission Date: 20240110
  Serious: Yes (Other)
  Sender: FDA-Public Use
  Company Number: US-TEVA-2023-US-2942168

PATIENT
  Age: 60 Year
  Sex: Male

DRUGS (2)
  1. AMANTADINE [Suspect]
     Active Substance: AMANTADINE
     Indication: Parkinson^s disease
     Dosage: 300 MILLIGRAM DAILY; THRICE DAILY
     Route: 065
  2. LEVODOPA [Concomitant]
     Active Substance: LEVODOPA
     Indication: Parkinson^s disease
     Dosage: 1500 MILLIGRAM DAILY;
     Route: 065

REACTIONS (1)
  - Myoclonus [Recovered/Resolved]
